FAERS Safety Report 10861858 (Version 1)
Quarter: 2015Q1

REPORT INFORMATION
  Report Type: Spontaneous
  Country: US (occurrence: US)
  Receive Date: 20150224
  Receipt Date: 20150224
  Transmission Date: 20150721
  Serious: Yes (Death)
  Sender: FDA-Public Use
  Company Number: US-BANPHARM-20153512

PATIENT
  Age: 26 Year
  Sex: Male

DRUGS (4)
  1. GAMMA-HYDROXYBUTYRIC ACID [Suspect]
     Active Substance: 4-HYDROXYBUTANOIC ACID
  2. VASODILATOR, UNKNOWN [Suspect]
     Active Substance: UNSPECIFIED INGREDIENT
  3. IBUPROFEN UNKNOWN PRODUCT [Suspect]
     Active Substance: IBUPROFEN
  4. AMPHETAMINE [Suspect]
     Active Substance: AMPHETAMINE

REACTIONS (2)
  - Drug abuse [Fatal]
  - Exposure via ingestion [None]
